FAERS Safety Report 7007064-X (Version None)
Quarter: 2010Q3

REPORT INFORMATION
  Report Type: 
  Country: None (occurrence: None)
  Receive Date: 20100913
  Receipt Date: 20100922
  Transmission Date: 20110219
  Serious: Yes (Hospitalization)
  Sender: FDA-Public Use
  Company Number: 2009SP026627

PATIENT
  Age: 26 Year
  Sex: Female
  Weight: 63.5036 kg

DRUGS (3)
  1. NUVARING [Suspect]
     Indication: CONTRACEPTION
     Dates: start: 20060701, end: 20070901
  2. TYLENOL [Concomitant]
  3. IBUPROFEN [Concomitant]

REACTIONS (4)
  - DEEP VEIN THROMBOSIS [None]
  - HAEMATOMA [None]
  - MULTIPLE INJURIES [None]
  - PULMONARY EMBOLISM [None]
